FAERS Safety Report 6122542-3 (Version None)
Quarter: 2009Q1

REPORT INFORMATION
  Report Type: 
  Country: None (occurrence: None)
  Receive Date: 20090318
  Receipt Date: 20090114
  Transmission Date: 20090719
  Serious: No
  Sender: FDA-Public Use
  Company Number: US-ASTRAZENECA-2009UW01126

PATIENT
  Age: 43 Year
  Sex: Female
  Weight: 52.2 kg

DRUGS (7)
  1. SYMBICORT [Suspect]
     Indication: ASTHMA
     Dosage: 160/4.5 MCG, ONE PUFF TWICE DAILY
     Route: 055
     Dates: start: 20090113
  2. SYMBICORT [Suspect]
     Indication: COUGH
     Dosage: 160/4.5 MCG, ONE PUFF TWICE DAILY
     Route: 055
     Dates: start: 20090113
  3. SYMBICORT [Suspect]
     Dosage: 160/4.5 MCG, 2 PUFFS ONCE DAILY
     Route: 055
     Dates: start: 20090113
  4. SYMBICORT [Suspect]
     Dosage: 160/4.5 MCG, 2 PUFFS ONCE DAILY
     Route: 055
     Dates: start: 20090113
  5. SINGULAIR [Concomitant]
  6. PRILOSEC [Concomitant]
     Route: 048
  7. SEREVENT [Concomitant]

REACTIONS (2)
  - ASTHENIA [None]
  - INFLUENZA LIKE ILLNESS [None]
